FAERS Safety Report 10764262 (Version 2)
Quarter: 2015Q1

REPORT INFORMATION
  Report Type: Report from Study
  Country: GB (occurrence: GB)
  Receive Date: 20150205
  Receipt Date: 20150325
  Transmission Date: 20150721
  Serious: Yes (Hospitalization)
  Sender: FDA-Public Use
  Company Number: GB-ROCHE-1530587

PATIENT
  Age: 49 Year
  Sex: Male
  Weight: 90 kg

DRUGS (4)
  1. CAPECITABINE. [Suspect]
     Active Substance: CAPECITABINE
     Indication: OESOPHAGEAL ADENOCARCINOMA
     Dosage: ACTUAL DOSE GIVEN AT MOST RECENT ADMINISTRATION ON 16/AUG/2013: 2500 MG.
     Route: 048
     Dates: start: 20130624
  2. CISPLATIN. [Suspect]
     Active Substance: CISPLATIN
     Indication: OESOPHAGEAL ADENOCARCINOMA
     Dosage: ACTUAL DOSE GIVEN AT MOST RECENT ADMINISTRATION ON 06/AUG/2013: 119 MG.
     Route: 042
     Dates: start: 20130624
  3. BEVACIZUMAB [Suspect]
     Active Substance: BEVACIZUMAB
     Indication: OESOPHAGEAL ADENOCARCINOMA
     Dosage: ACTUAL DOSE GIVEN AT MOST RECENT ADMINISTRATION ON 06/AUG/2013: 687.5 MG.
     Route: 042
     Dates: start: 20130624
  4. EPIRUBICIN [Suspect]
     Active Substance: EPIRUBICIN
     Indication: OESOPHAGEAL ADENOCARCINOMA
     Dosage: ACTUAL DOSE GIVEN AT MOST RECENT ADMINISTRATION ON 06/AUG/2013: 100 MG.
     Route: 042
     Dates: start: 20130624

REACTIONS (1)
  - Sinus tachycardia [Recovered/Resolved]

NARRATIVE: CASE EVENT DATE: 20130816
